FAERS Safety Report 9258472 (Version 2)
Quarter: 2013Q3

REPORT INFORMATION
  Report Type: Spontaneous
  Country: US (occurrence: US)
  Receive Date: 20130426
  Receipt Date: 20130718
  Transmission Date: 20140515
  Serious: Yes (Other)
  Sender: FDA-Public Use
  Company Number: US-CELGENEUS-163-C4047-13042858

PATIENT
  Sex: 0

DRUGS (3)
  1. CC-4047 [Suspect]
     Indication: PLASMA CELL MYELOMA
     Dosage: 2, 3, OR 4 MG
     Route: 048
  2. PEGYLATED LIPOSOMAL DOXORUBICIN [Suspect]
     Indication: PLASMA CELL MYELOMA
     Route: 041
  3. DEXAMETHASONE [Suspect]
     Indication: PLASMA CELL MYELOMA
     Route: 041

REACTIONS (28)
  - Blood alkaline phosphatase increased [Unknown]
  - Hypoglycaemia [Unknown]
  - Pneumonia [Unknown]
  - Hyponatraemia [Unknown]
  - Lymphopenia [Unknown]
  - Leukopenia [Unknown]
  - Neutropenia [Unknown]
  - Hyperglycaemia [Unknown]
  - Anaemia [Unknown]
  - Alanine aminotransferase increased [Unknown]
  - Aspartate aminotransferase increased [Unknown]
  - Blood bilirubin decreased [Unknown]
  - Blood urea increased [Unknown]
  - Blood creatinine increased [Unknown]
  - Eosinophil count increased [Unknown]
  - Haematocrit decreased [Unknown]
  - Hypocalcaemia [Unknown]
  - Monocyte count increased [Unknown]
  - Protein total decreased [Unknown]
  - Thrombocytopenia [Unknown]
  - Abdominal distension [Unknown]
  - Constipation [Unknown]
  - Fatigue [Unknown]
  - Pyrexia [Unknown]
  - Stomatitis [Unknown]
  - Nausea [Unknown]
  - Rash [Unknown]
  - Upper respiratory tract infection [Unknown]
